FAERS Safety Report 6927205-X (Version None)
Quarter: 2010Q3

REPORT INFORMATION
  Report Type: 
  Country: None (occurrence: None)
  Receive Date: 20100816
  Receipt Date: 20100806
  Transmission Date: 20110219
  Serious: Yes (Hospitalization)
  Sender: FDA-Public Use
  Company Number: CA-BRISTOL-MYERS SQUIBB COMPANY-15191737

PATIENT
  Age: 67 Year
  Sex: Female

DRUGS (7)
  1. ORENCIA [Suspect]
     Indication: RHEUMATOID ARTHRITIS
     Dosage: LAST DOSE ON 15JUN10,06AUG10. NO OF INF:6
     Route: 042
     Dates: start: 20100419
  2. FOSAMAX [Concomitant]
  3. MICARDIS [Concomitant]
  4. AMITRIPTYLINE HYDROCHLORIDE [Concomitant]
  5. RANITIDINE [Concomitant]
  6. TYLENOL (CAPLET) [Concomitant]
  7. SYMBICORT [Concomitant]

REACTIONS (3)
  - DYSARTHRIA [None]
  - SPEECH DISORDER [None]
  - TRANSIENT GLOBAL AMNESIA [None]
